FAERS Safety Report 6917433-1 (Version None)
Quarter: 2010Q3

REPORT INFORMATION
  Report Type: 
  Country: None (occurrence: None)
  Receive Date: 20100810
  Receipt Date: 20100729
  Transmission Date: 20110219
  Serious: Yes (Hospitalization, Other)
  Sender: FDA-Public Use
  Company Number: PHHY2010DE44637

PATIENT
  Sex: Male
  Weight: 62 kg

DRUGS (8)
  1. ALISKIREN ALI+ [Suspect]
     Indication: HYPERTENSION
     Dosage: 150 MG/D
     Dates: start: 20081204, end: 20081215
  2. ALISKIREN ALI+ [Suspect]
     Dosage: 300 MG/ DAY
     Dates: start: 20081215
  3. TELMISARTAN [Concomitant]
     Dosage: 80/12.5 MG
     Dates: start: 20081204
  4. FELOCOR [Concomitant]
     Dosage: 5 MG/DAY
     Dates: start: 20081204
  5. RAMIPRIL [Concomitant]
     Dosage: 5 MG/DAY
     Dates: start: 20081204
  6. EBRANTIL [Concomitant]
     Dosage: 60 MG/DAY
     Dates: start: 20081204
  7. ANTIPLATELET [Concomitant]
  8. STATINE [Concomitant]

REACTIONS (2)
  - DYSPNOEA [None]
  - PERCUTANEOUS CORONARY INTERVENTION [None]
